FAERS Safety Report 8364852-5 (Version None)
Quarter: 2012Q2

REPORT INFORMATION
  Report Type: 
  Country: None (occurrence: None)
  Receive Date: 20120516
  Receipt Date: 20120509
  Transmission Date: 20120825
  Serious: Yes (Hospitalization, Other)
  Sender: FDA-Public Use
  Company Number: US-ROCHE-669522

PATIENT
  Sex: Male

DRUGS (5)
  1. PEGASYS [Suspect]
     Indication: HEPATITIS C
     Route: 065
     Dates: start: 20090810, end: 20090907
  2. RIBAVIRIN [Suspect]
     Dosage: DIVIDED DOSES, LAST DOSE PRIOR TO SAE 8/MAY/2012
  3. RIBAVIRIN [Suspect]
     Indication: HEPATITIS C
     Route: 065
     Dates: start: 20090810, end: 20090907
  4. TELAPREVIR [Suspect]
     Indication: HEPATITIS C
     Dosage: LAST DOSE PRIOR TO SAE 8/MAY/2012
  5. PEGASYS [Suspect]
     Dosage: LAST DOSE PRIOR TO SAE 6/MAY/2012

REACTIONS (7)
  - FEELING ABNORMAL [None]
  - LIVER DISORDER [None]
  - INSOMNIA [None]
  - HEPATIC FUNCTION ABNORMAL [None]
  - NAUSEA [None]
  - PLATELET COUNT DECREASED [None]
  - VOMITING [None]
